FAERS Safety Report 18856198 (Version 3)
Quarter: 2022Q2

REPORT INFORMATION
  Report Type: Report from Study
  Country: US (occurrence: US)
  Receive Date: 20210206
  Receipt Date: 20220513
  Transmission Date: 20220721
  Serious: No
  Sender: FDA-Public Use
  Company Number: US-TEVA-2020-US-1817621

PATIENT
  Age: 34 Year
  Sex: Male

DRUGS (4)
  1. ACTIQ [Suspect]
     Active Substance: FENTANYL CITRATE
     Indication: Joint injury
     Route: 048
     Dates: start: 2004
  2. ACTIQ [Suspect]
     Active Substance: FENTANYL CITRATE
     Indication: Joint injury
  3. ACTIQ [Suspect]
     Active Substance: FENTANYL CITRATE
     Indication: Back injury
  4. XANAX [Concomitant]
     Active Substance: ALPRAZOLAM
     Route: 065

REACTIONS (4)
  - Dental caries [Not Recovered/Not Resolved]
  - Tooth fracture [Not Recovered/Not Resolved]
  - Tooth loss [Not Recovered/Not Resolved]
  - Product use in unapproved indication [Unknown]

NARRATIVE: CASE EVENT DATE: 20100101
